FAERS Safety Report 8965325 (Version 1)
Quarter: 2012Q4

REPORT INFORMATION
  Report Type: 
  Country: US (occurrence: US)
  Receive Date: 20121213
  Receipt Date: 20121213
  Transmission Date: 20130627
  Serious: Yes (Hospitalization)
  Sender: FDA-Public Use
  Company Number: US-ACTELION-A-NJ2012-76011

PATIENT
  Age: 50 Year
  Sex: Male

DRUGS (2)
  1. VELETRI [Suspect]
     Indication: PULMONARY ARTERIAL HYPERTENSION
     Dosage: 34 ng/kg, per min
     Route: 041
     Dates: start: 20110829
  2. COUMADIN [Concomitant]

REACTIONS (1)
  - Food poisoning [Unknown]
